FAERS Safety Report 14133670 (Version 1)
Quarter: 2017Q4

REPORT INFORMATION
  Report Type: Other
  Country: CA (occurrence: CA)
  Receive Date: 20171027
  Receipt Date: 20171027
  Transmission Date: 20180321
  Serious: Yes (Other)
  Sender: FDA-Public Use
  Company Number: CA-APOTEX-2017AP020218

PATIENT
  Age: 61 Year
  Sex: Female

DRUGS (2)
  1. APO-LEFLUNOMIDE [Suspect]
     Active Substance: LEFLUNOMIDE
     Indication: PRODUCT USED FOR UNKNOWN INDICATION
     Dosage: UNK
     Route: 065
  2. METHOTREXATE SODIUM. [Suspect]
     Active Substance: METHOTREXATE SODIUM
     Indication: RHEUMATOID ARTHRITIS
     Dosage: 1 EVERY 1 WEEK(S)
     Route: 065

REACTIONS (2)
  - Hypersensitivity [Unknown]
  - Type 2 diabetes mellitus [Unknown]
